FAERS Safety Report 7338224-6 (Version None)
Quarter: 2011Q1

REPORT INFORMATION
  Report Type: 
  Country: None (occurrence: None)
  Receive Date: 20110308
  Receipt Date: 20110223
  Transmission Date: 20110831
  Serious: Yes (Other)
  Sender: FDA-Public Use
  Company Number: PHHY2011BR16008

PATIENT
  Sex: Female

DRUGS (9)
  1. HYDROCHLOROTHIAZIDE [Concomitant]
     Route: 048
  2. MACRODANTIN [Concomitant]
     Indication: URINARY TRACT INFECTION
     Dosage: EVERY DAY
     Route: 048
     Dates: start: 20101201
  3. LASIX [Concomitant]
     Route: 048
  4. CAPTOPRIL [Suspect]
     Route: 048
  5. LUFTAL [Concomitant]
     Route: 048
  6. ALDACTONE [Concomitant]
     Dosage: 1/4 FOR WEEK (11 HRS), BETWEEN 19 AND 20 HRS,
     Route: 048
     Dates: start: 20110225
  7. OMEPRAZOLE [Suspect]
     Indication: PROPHYLAXIS
     Route: 048
  8. SOMALGIN [Concomitant]
     Route: 048
  9. LORAX [Concomitant]
     Route: 048

REACTIONS (4)
  - BLOOD PRESSURE INCREASED [None]
  - SWELLING [None]
  - FEELING ABNORMAL [None]
  - HEART RATE DECREASED [None]
